FAERS Safety Report 5130354-2 (Version None)
Quarter: 2006Q4

REPORT INFORMATION
  Report Type: 
  Country: None (occurrence: None)
  Receive Date: 20061019
  Receipt Date: 20061012
  Transmission Date: 20070319
  Serious: Yes (Other)
  Sender: FDA-Public Use
  Company Number: DE-BRISTOL-MYERS SQUIBB COMPANY-13541123

PATIENT

DRUGS (1)
  1. KARVEA [Suspect]

REACTIONS (2)
  - GASTRIC CANCER [None]
  - GASTROINTESTINAL CARCINOMA [None]
